FAERS Safety Report 6071521-3 (Version None)
Quarter: 2009Q1

REPORT INFORMATION
  Report Type: 
  Country: None (occurrence: None)
  Receive Date: 20090206
  Receipt Date: 20090206
  Transmission Date: 20090719
  Serious: No
  Sender: FDA-Public Use
  Company Number: None

PATIENT
  Age: 44 Year
  Sex: Female

DRUGS (13)
  1. LYRICA [Suspect]
     Dates: start: 20070831, end: 20070906
  2. PREDNISONE [Concomitant]
  3. IMITREX [Concomitant]
  4. EFFEXOR [Concomitant]
  5. NORCO [Concomitant]
  6. PHENERGAN [Concomitant]
  7. DILAUDID [Concomitant]
  8. BENADRYL [Concomitant]
  9. ALBUTEROL [Concomitant]
  10. ZOFRAN [Concomitant]
  11. TORADOL [Concomitant]
  12. AMITRIPTYLINE HCL [Concomitant]
  13. POTASSIUM CHLORIDE [Concomitant]

REACTIONS (8)
  - ABDOMINAL PAIN UPPER [None]
  - ABDOMINAL TENDERNESS [None]
  - ALANINE AMINOTRANSFERASE INCREASED [None]
  - ASPARTATE AMINOTRANSFERASE INCREASED [None]
  - ASTHENIA [None]
  - LIVER DISORDER [None]
  - LIVER INJURY [None]
  - OEDEMA PERIPHERAL [None]
